FAERS Safety Report 5517647-1 (Version None)
Quarter: 2007Q4

REPORT INFORMATION
  Report Type: 
  Country: None (occurrence: None)
  Receive Date: 20071114
  Receipt Date: 20071022
  Transmission Date: 20080405
  Serious: No
  Sender: FDA-Public Use
  Company Number: US-BOEHRINGER INGELHEIM PHARMACEUTICALS, INC.-2007-BP-22125BP

PATIENT
  Age: 69 Year
  Sex: Male

DRUGS (3)
  1. MIRAPEX [Suspect]
     Indication: PARKINSON'S DISEASE
     Route: 048
     Dates: end: 20071002
  2. STALEVO 100 [Concomitant]
     Route: 048
     Dates: start: 20060101
  3. NEXIUM [Concomitant]

REACTIONS (1)
  - HYPERSEXUALITY [None]
